FAERS Safety Report 9159361 (Version 1)
Quarter: 2013Q1

REPORT INFORMATION
  Report Type: Spontaneous
  Country: US (occurrence: None)
  Receive Date: 20130213
  Receipt Date: 20130213
  Transmission Date: 20140127
  Serious: Yes (Other)
  Sender: FDA-Public Use
  Company Number: ADR-2013-00222

PATIENT
  Age: 21 Year
  Sex: Female

DRUGS (2)
  1. BACLOFEN [Suspect]
  2. BACLOFEN [Suspect]

REACTIONS (4)
  - Clonus [None]
  - Pruritus [None]
  - Decreased appetite [None]
  - Drug withdrawal syndrome [None]
